FAERS Safety Report 4709252-1 (Version None)
Quarter: 2005Q3

REPORT INFORMATION
  Report Type: 
  Country: None (occurrence: None)
  Receive Date: 20050706
  Receipt Date: 20050617
  Transmission Date: 20060218
  Serious: Yes (Hospitalization)
  Sender: FDA-Public Use
  Company Number: DSA_26707_2005

PATIENT
  Age: 83 Year
  Sex: Female

DRUGS (10)
  1. DILTIAZEM HCL [Suspect]
     Indication: ARRHYTHMIA
     Dosage: 60 MG TID PO
     Route: 048
     Dates: start: 20050317
  2. LASIX [Suspect]
     Indication: ARRHYTHMIA
     Dosage: 40 MG Q DAY PO
     Route: 048
     Dates: start: 20050317, end: 20050321
  3. CORDARONE [Suspect]
     Indication: ATRIAL FIBRILLATION
     Dosage: 200 MG Q DAY PO
     Route: 048
     Dates: start: 20050317
  4. AUGMENTIN '125' [Suspect]
     Indication: PYREXIA
     Dosage: DF PO
     Route: 048
     Dates: start: 20050319, end: 20050325
  5. PREVISCAN [Suspect]
     Indication: ATRIAL FIBRILLATION
     Dosage: 10 MG Q DAY PO
     Route: 048
     Dates: start: 20050312, end: 20050320
  6. PREVISCAN [Suspect]
     Indication: ATRIAL FIBRILLATION
     Dosage: 5 MG DAY PO
     Route: 048
     Dates: start: 20050321, end: 20050324
  7. DIGOXIN [Suspect]
     Indication: ATRIAL FIBRILLATION
     Dosage: 0.25 MG Q DAY PO
     Route: 048
     Dates: start: 20050318
  8. MUCOMYST [Concomitant]
  9. BRICANYL [Concomitant]
  10. ATROVENT [Concomitant]

REACTIONS (8)
  - ARRHYTHMIA [None]
  - BLOOD PRESSURE SYSTOLIC INCREASED [None]
  - CREATININE RENAL CLEARANCE DECREASED [None]
  - DEHYDRATION [None]
  - DISEASE RECURRENCE [None]
  - INTERNATIONAL NORMALISED RATIO INCREASED [None]
  - PYREXIA [None]
  - RENAL FAILURE ACUTE [None]
